FAERS Safety Report 10741714 (Version 1)
Quarter: 2015Q1

REPORT INFORMATION
  Report Type: Spontaneous
  Country: US (occurrence: US)
  Receive Date: 20150127
  Receipt Date: 20150127
  Transmission Date: 20150721
  Serious: Yes (Other)
  Sender: FDA-Public Use
  Company Number: US-BAYER-2015-007399

PATIENT
  Age: 72 Year
  Sex: Female

DRUGS (1)
  1. AVELOX [Suspect]
     Active Substance: MOXIFLOXACIN HYDROCHLORIDE
     Indication: BRONCHITIS
     Dosage: UNK
     Dates: start: 20130502, end: 20130508

REACTIONS (23)
  - Iris transillumination defect [None]
  - Uveitis [None]
  - Intraocular pressure test [None]
  - Anhedonia [None]
  - Vitritis [None]
  - Eye inflammation [None]
  - Ciliary body disorder [None]
  - Quality of life decreased [None]
  - Iridocyclitis [None]
  - Visual impairment [None]
  - Pigmentary glaucoma [None]
  - Emotional distress [None]
  - Pigment dispersion syndrome [None]
  - Pain [None]
  - Eye swelling [None]
  - Photophobia [None]
  - Glaucoma [None]
  - Iris hypopigmentation [None]
  - Ciliary body degeneration [None]
  - Mental disorder [None]
  - Eye pain [None]
  - Cataract [None]
  - Injury [None]
